FAERS Safety Report 10252657 (Version 1)
Quarter: 2014Q2

REPORT INFORMATION
  Report Type: Report from Study
  Country: FR (occurrence: FR)
  Receive Date: 20140623
  Receipt Date: 20140623
  Transmission Date: 20141212
  Serious: Yes (Hospitalization)
  Sender: FDA-Public Use
  Company Number: FR-JNJFOC-20140613584

PATIENT
  Age: 74 Year
  Sex: Female
  Weight: 100 kg

DRUGS (6)
  1. XARELTO [Suspect]
     Indication: THROMBOSIS PROPHYLAXIS
     Route: 048
     Dates: start: 20130903
  2. XARELTO [Suspect]
     Indication: THROMBOSIS PROPHYLAXIS
     Route: 048
     Dates: start: 20130814, end: 20130831
  3. DIAMICRON [Concomitant]
     Route: 065
     Dates: start: 2013
  4. CRESTOR [Concomitant]
     Route: 065
     Dates: start: 2013
  5. CARDENSIEL [Concomitant]
     Route: 065
     Dates: start: 2013
  6. INEXIUM [Concomitant]
     Route: 065
     Dates: start: 2013

REACTIONS (1)
  - Post thrombotic syndrome [Recovered/Resolved]
